FAERS Safety Report 5832573 (Version 2)
Quarter: 2012Q4

REPORT INFORMATION
  Report Type: 
  Country: US (occurrence: US)
  Receive Date: 20050707
  Receipt Date: 20121206
  Transmission Date: 20130627
  Serious: Yes (Other)
  Sender: FDA-Public Use
  Company Number: US-JNJFOC-20050607426

PATIENT
  Sex: Female

DRUGS (4)
  1. MOTRIN IB [Suspect]
     Indication: CERVIX DISORDER
     Route: 048
     Dates: start: 200505, end: 200505
  2. MOTRIN IB [Suspect]
     Indication: ARTHRITIS
     Route: 048
     Dates: start: 200505, end: 200505
  3. GLUCOSAMINE [Concomitant]
  4. ACETYLCARNITINE [Concomitant]

REACTIONS (7)
  - Vertigo [Unknown]
  - Back pain [Unknown]
  - Incorrect dose administered [Unknown]
  - Feeling abnormal [None]
  - Nausea [None]
  - Vomiting [None]
  - Refusal of treatment by patient [None]
